FAERS Safety Report 6046941-3 (Version None)
Quarter: 2009Q1

REPORT INFORMATION
  Report Type: 
  Country: None (occurrence: None)
  Receive Date: 20090122
  Receipt Date: 20090119
  Transmission Date: 20090719
  Serious: Yes (Death, Life-Threatening)
  Sender: FDA-Public Use
  Company Number: JP-JNJFOC-20081007041

PATIENT
  Sex: Male
  Weight: 49 kg

DRUGS (16)
  1. ITRACONAZOLE [Suspect]
  2. ITRACONAZOLE [Suspect]
     Indication: BRONCHOPULMONARY ASPERGILLOSIS
  3. MIDAZOLAM HCL [Concomitant]
     Route: 042
  4. MEDICON [Concomitant]
     Indication: COUGH
     Route: 048
  5. MUCOSOLVAN [Concomitant]
     Indication: PRODUCTIVE COUGH
     Route: 048
  6. BAKTAR [Concomitant]
     Route: 048
  7. ALFAROL [Concomitant]
     Indication: MUSCLE FIBROSIS
     Route: 048
  8. MEROPEN [Concomitant]
     Route: 041
  9. MINOCYCLINE HCL [Concomitant]
     Route: 041
  10. ALINAMIN [Concomitant]
     Route: 042
  11. ASCORBIC ACID [Concomitant]
     Dosage: 100 PG
     Route: 042
  12. SOLU-MEDROL [Concomitant]
     Route: 042
  13. PREDONINE [Concomitant]
     Route: 042
  14. GASTER [Concomitant]
     Route: 042
  15. BFLUID [Concomitant]
     Route: 041
  16. FLAVITAN [Concomitant]
     Route: 042

REACTIONS (3)
  - HEPATIC FUNCTION ABNORMAL [None]
  - INTERSTITIAL LUNG DISEASE [None]
  - PNEUMOTHORAX [None]
